FAERS Safety Report 8861113 (Version 1)
Quarter: 2012Q4

REPORT INFORMATION
  Report Type: Spontaneous
  Country: NL (occurrence: None)
  Receive Date: 20121023
  Receipt Date: 20121023
  Transmission Date: 20130627
  Serious: Yes (Hospitalization)
  Sender: FDA-Public Use
  Company Number: 2012-5087

PATIENT
  Sex: Female

DRUGS (2)
  1. SOMATULINE AUTOGEL [Suspect]
     Indication: DRUG USE FOR UNKNOWN INDICATION
     Dosage: 90 mg (90 mg 1 in 28 D)
     Route: 058
     Dates: start: 20120222
  2. SOMATULINE AUTOGEL [Suspect]
     Indication: DRUG USE FOR UNKNOWN INDICATION

REACTIONS (1)
  - Stoma care [None]
